FAERS Safety Report 7622566-0 (Version None)
Quarter: 2011Q3

REPORT INFORMATION
  Report Type: 
  Country: None (occurrence: None)
  Receive Date: 20110712
  Receipt Date: 20110627
  Transmission Date: 20111222
  Serious: Yes (Hospitalization, Other)
  Sender: FDA-Public Use
  Company Number: TUK2011A00070

PATIENT
  Age: 36 Year
  Sex: Male

DRUGS (4)
  1. METFORMIN HCL [Concomitant]
  2. GLICLAZIDE (GLICLAZIDE) [Concomitant]
  3. SIMVASTATIN [Concomitant]
  4. ACTOS [Suspect]
     Indication: TYPE 2 DIABETES MELLITUS
     Dosage: 15 MG (15 MG, 1 IN 1 D) ORAL
     Route: 048
     Dates: start: 20050503, end: 20050608

REACTIONS (3)
  - DYSPNOEA [None]
  - EXERCISE TOLERANCE DECREASED [None]
  - PLEURAL EFFUSION [None]
